FAERS Safety Report 24063511 (Version 1)
Quarter: 2024Q3

REPORT INFORMATION
  Report Type: Spontaneous
  Country: DE (occurrence: DE)
  Receive Date: 20240709
  Receipt Date: 20240709
  Transmission Date: 20241016
  Serious: Yes (Other)
  Sender: GENMAB
  Company Number: DE-ABBVIE-5827336

PATIENT
  Age: 80 Year
  Sex: Male

DRUGS (7)
  1. EPCORITAMAB [Suspect]
     Active Substance: EPCORITAMAB
     Indication: Diffuse large B-cell lymphoma
     Dosage: 0.16 MG FREQUENCY TEXT: CYCLE 1 DAY 1
     Route: 058
     Dates: start: 20240227, end: 20240227
  2. EPCORITAMAB [Suspect]
     Active Substance: EPCORITAMAB
     Dosage: 0.8 MG FREQUENCY TEXT: CYCLE 1, D8
     Route: 058
     Dates: start: 20240305, end: 20240305
  3. EPCORITAMAB [Suspect]
     Active Substance: EPCORITAMAB
     Dosage: 48 MG FREQUENCY TEXT: CYCLE 1 DAY15
     Route: 058
     Dates: start: 20240312, end: 20240312
  4. EPCORITAMAB [Suspect]
     Active Substance: EPCORITAMAB
     Dosage: 48 MG FREQUENCY TEXT: CYCLE 1 DAY22
     Route: 058
     Dates: start: 20240320, end: 20240320
  5. EPCORITAMAB [Suspect]
     Active Substance: EPCORITAMAB
     Dosage: UNK
     Route: 058
     Dates: start: 20240402
  6. PREDNISOLONE ACETATE [Concomitant]
     Active Substance: PREDNISOLONE ACETATE
     Indication: Diffuse large B-cell lymphoma
     Dosage: DOSE: PRELIMINARY PHASE
     Dates: start: 202401
  7. METAMIZOLE [Concomitant]
     Active Substance: METAMIZOLE
     Indication: Product used for unknown indication

REACTIONS (4)
  - Skin disorder [Recovering/Resolving]
  - Pain in extremity [Unknown]
  - Neutropenia [Unknown]
  - Pruritus [Unknown]

NARRATIVE: CASE EVENT DATE: 20240101
